FAERS Safety Report 15654885 (Version 2)
Quarter: 2018Q4

REPORT INFORMATION
  Report Type: Report from Study
  Country: None (occurrence: HU)
  Receive Date: 20181126
  Receipt Date: 20181206
  Transmission Date: 20190205
  Serious: Yes (Death)
  Sender: FDA-Public Use
  Company Number: HU-ABBVIE-18S-076-2567911-00

PATIENT
  Age: 78 Year
  Sex: Female
  Weight: 45 kg

DRUGS (9)
  1. DUODOPA [Suspect]
     Active Substance: CARBIDOPA\LEVODOPA
     Indication: PARKINSON^S DISEASE
     Dosage: MD.4 ML; CD.1 ML/H;ED.9 ML
     Route: 050
     Dates: start: 20130814
  2. VIDOTIN [Concomitant]
     Indication: HYPERTENSION
     Dosage: 0.5 TABLET IN THE EVENING
     Route: 048
     Dates: start: 2015
  3. STALEVO [Concomitant]
     Active Substance: CARBIDOPA\ENTACAPONE\LEVODOPA
     Indication: PARKINSON^S DISEASE
     Dosage: 150/37.5/200 MG,1 TABLET IN THE EVENING
     Route: 048
     Dates: end: 20181122
  4. RIVOTRIL [Concomitant]
     Active Substance: CLONAZEPAM
     Indication: DEPRESSION
     Dosage: 1 - 0.5 - 0.5 - 2 TABLET
     Route: 048
  5. BISOCARD [Concomitant]
     Active Substance: BISOPROLOL
     Indication: HYPERTENSION
     Route: 048
  6. ASA PROTECT PHARMAVIT [Concomitant]
     Indication: PROPHYLAXIS
     Route: 048
  7. TORVATEC [Concomitant]
     Indication: HYPERLIPIDAEMIA
     Route: 048
     Dates: start: 2009
  8. CITAPRAM [Concomitant]
     Active Substance: CITALOPRAM HYDROCHLORIDE
     Indication: DEPRESSION
     Dosage: 1 AND 0.5 TABLET
     Route: 048
  9. PALIXID [Concomitant]
     Indication: HALLUCINATION
     Dosage: 1 TABLET IN THE EVENING
     Route: 048
     Dates: start: 201804

REACTIONS (3)
  - Cardiac valve disease [Fatal]
  - Cardiomegaly [Fatal]
  - Left ventricular failure [Fatal]

NARRATIVE: CASE EVENT DATE: 20181122
